FAERS Safety Report 5237707-2 (Version None)
Quarter: 2007Q1

REPORT INFORMATION
  Report Type: 
  Country: None (occurrence: None)
  Receive Date: 20070214
  Receipt Date: 20070202
  Transmission Date: 20070707
  Serious: Yes (Hospitalization, Other)
  Sender: FDA-Public Use
  Company Number: US-AMGEN-US207707

PATIENT
  Sex: Female
  Weight: 83.1 kg

DRUGS (19)
  1. ENBREL [Suspect]
     Indication: RHEUMATOID ARTHRITIS
     Route: 058
     Dates: start: 20050228
  2. PREDNISONE [Suspect]
     Route: 065
  3. METHOTREXATE [Concomitant]
     Route: 048
     Dates: start: 20040101
  4. AZULFIDINE [Concomitant]
     Route: 048
     Dates: start: 20000101
  5. VOLTAREN [Concomitant]
     Route: 065
  6. ACTONEL [Concomitant]
     Route: 065
  7. CYMBALTA [Concomitant]
     Route: 065
  8. SINGULAIR [Concomitant]
     Route: 065
  9. ZYRTEC [Concomitant]
     Route: 065
  10. BUSPAR [Concomitant]
     Route: 065
  11. ULTRAM [Concomitant]
     Route: 065
  12. SPIRIVA [Concomitant]
     Route: 065
  13. ATENOLOL [Concomitant]
     Route: 065
  14. FLONASE [Concomitant]
     Route: 065
  15. ASTELIN [Concomitant]
     Route: 065
  16. NEXIUM [Concomitant]
     Route: 065
  17. VYTORIN [Concomitant]
     Route: 065
  18. ASPIRIN [Concomitant]
     Route: 065
  19. FLEXERIL [Concomitant]
     Route: 065

REACTIONS (11)
  - ARTHRALGIA [None]
  - BACK PAIN [None]
  - CERVICAL MYELOPATHY [None]
  - DEPRESSION [None]
  - FATIGUE [None]
  - FOOT FRACTURE [None]
  - NEUTROPHIL COUNT INCREASED [None]
  - PELVIC FRACTURE [None]
  - PLATELET COUNT INCREASED [None]
  - SPINAL COLUMN STENOSIS [None]
  - WHITE BLOOD CELL COUNT INCREASED [None]
